FAERS Safety Report 10642947 (Version 1)
Quarter: 2014Q4

REPORT INFORMATION
  Report Type: Spontaneous
  Country: US (occurrence: None)
  Receive Date: 20141209
  Receipt Date: 20141209
  Transmission Date: 20150529
  Serious: Yes (Disabling)
  Sender: FDA-Public Use
  Company Number: None

PATIENT
  Age: 24 Year
  Sex: Male
  Weight: 88.45 kg

DRUGS (1)
  1. FINASTERIDE. [Suspect]
     Active Substance: FINASTERIDE
     Indication: ANDROGENETIC ALOPECIA
     Dosage: 1 PILL ONCE DAILY
     Route: 048

REACTIONS (6)
  - Mental disorder [None]
  - Nervous system disorder [None]
  - Activities of daily living impaired [None]
  - Erectile dysfunction [None]
  - Libido disorder [None]
  - Anxiety [None]

NARRATIVE: CASE EVENT DATE: 20141203
